FAERS Safety Report 19061633 (Version 1)
Quarter: 2021Q1

REPORT INFORMATION
  Report Type: Spontaneous
  Country: US (occurrence: US)
  Receive Date: 20210326
  Receipt Date: 20210326
  Transmission Date: 20210420
  Serious: Yes (Other)
  Sender: FDA-Public Use
  Company Number: US-SA-2021SA098052

PATIENT
  Age: 75 Year
  Sex: Female

DRUGS (2)
  1. COVID?19 VACCINE NOS. [Suspect]
     Active Substance: COVID-19 VACCINE NOS
  2. AUBAGIO [Suspect]
     Active Substance: TERIFLUNOMIDE
     Indication: MULTIPLE SCLEROSIS
     Dosage: 7 MG, QD
     Route: 048

REACTIONS (6)
  - Headache [Unknown]
  - Arthralgia [Unknown]
  - Multiple sclerosis relapse [Unknown]
  - Myalgia [Unknown]
  - Alopecia [Unknown]
  - Visual impairment [Unknown]

NARRATIVE: CASE EVENT DATE: 202103
